FAERS Safety Report 26074241 (Version 1)
Quarter: 2025Q4

REPORT INFORMATION
  Report Type: Spontaneous
  Country: US (occurrence: None)
  Receive Date: 20251121
  Receipt Date: 20251121
  Transmission Date: 20260117
  Serious: No
  Sender: AUROBINDO
  Company Number: US-AUROBINDO-AUR-APL-2025-048379

PATIENT

DRUGS (1)
  1. CLONAZEPAM [Suspect]
     Active Substance: CLONAZEPAM
     Indication: Product used for unknown indication
     Dosage: UNK
     Route: 065

REACTIONS (5)
  - Headache [Unknown]
  - Anxiety [Unknown]
  - Withdrawal syndrome [Unknown]
  - Therapeutic response changed [Unknown]
  - Product substitution issue [Unknown]
